FAERS Safety Report 24798121 (Version 1)
Quarter: 2025Q1

REPORT INFORMATION
  Report Type: Spontaneous
  Country: US (occurrence: US)
  Receive Date: 20250102
  Receipt Date: 20250102
  Transmission Date: 20250408
  Serious: No
  Sender: SANOFI AVENTIS
  Company Number: US-SA-2025SA001019

PATIENT
  Age: 80 Year
  Sex: Female

DRUGS (2)
  1. KEVZARA [Suspect]
     Active Substance: SARILUMAB
     Indication: Polymyalgia rheumatica
     Dosage: 200 MG, QOW
     Route: 058
  2. PREGABALIN [Suspect]
     Active Substance: PREGABALIN

REACTIONS (4)
  - Somnolence [Unknown]
  - Vulvovaginal rash [Unknown]
  - Asthenia [Unknown]
  - Myalgia [Unknown]
